FAERS Safety Report 4602808-6 (Version None)
Quarter: 2005Q1

REPORT INFORMATION
  Report Type: 
  Country: None (occurrence: None)
  Receive Date: 20050309
  Receipt Date: 20040928
  Transmission Date: 20050727
  Serious: Yes (Hospitalization)
  Sender: FDA-Public Use
  Company Number: BE-JNJFOC-20040905843

PATIENT
  Sex: Female

DRUGS (9)
  1. GALANTAMINE [Suspect]
     Indication: VASCULAR DEMENTIA
     Route: 049
  2. HYPERLIPEN [Concomitant]
     Route: 065
  3. ADALAT [Concomitant]
     Route: 049
  4. LORAMET [Concomitant]
     Indication: INSOMNIA
     Dosage: AS REQUIRED
     Route: 049
  5. DAKAR [Concomitant]
     Indication: REFLUX OESOPHAGITIS
     Route: 065
  6. VITAMIN B-12 [Concomitant]
     Route: 030
  7. SERTRALINE HCL [Concomitant]
     Route: 065
  8. SELOZOK [Concomitant]
     Route: 065
  9. ZURCALE [Concomitant]
     Route: 065

REACTIONS (4)
  - ANOREXIA [None]
  - GAIT DISTURBANCE [None]
  - GASTRITIS [None]
  - WEIGHT DECREASED [None]
